FAERS Safety Report 6030001-1 (Version None)
Quarter: 2009Q1

REPORT INFORMATION
  Report Type: 
  Country: None (occurrence: None)
  Receive Date: 20090105
  Receipt Date: 20090105
  Transmission Date: 20090719
  Serious: Yes (Other)
  Sender: FDA-Public Use
  Company Number: None

PATIENT
  Age: 62 Year
  Sex: Female
  Weight: 85.2762 kg

DRUGS (3)
  1. CYMBALTA [Suspect]
     Indication: DEPRESSION
     Dosage: 30 MG  DAILY PO
     Route: 048
     Dates: start: 20080515, end: 20081231
  2. CYMBALTA [Suspect]
     Indication: HYPERTHYROIDISM
     Dosage: 30 MG  DAILY PO
     Route: 048
     Dates: start: 20080515, end: 20081231
  3. CYMBALTA [Suspect]
     Indication: NEURALGIA
     Dosage: 30 MG  DAILY PO
     Route: 048
     Dates: start: 20080515, end: 20081231

REACTIONS (7)
  - CONSTIPATION [None]
  - DIZZINESS [None]
  - DRUG WITHDRAWAL SYNDROME [None]
  - DRY MOUTH [None]
  - HYPERHIDROSIS [None]
  - NAUSEA [None]
  - ORTHOSTATIC HYPOTENSION [None]
